FAERS Safety Report 13583083 (Version 1)
Quarter: 2017Q2

REPORT INFORMATION
  Report Type: Spontaneous
  Country: US (occurrence: US)
  Receive Date: 20170525
  Receipt Date: 20170525
  Transmission Date: 20170830
  Serious: No
  Sender: FDA-Public Use
  Company Number: US-ALARA PHARMACEUTICAL CORPORATION-2021247

PATIENT
  Age: 74 Year
  Sex: Female
  Weight: 46.36 kg

DRUGS (1)
  1. LEVO-T [Suspect]
     Active Substance: LEVOTHYROXINE SODIUM
     Route: 048

REACTIONS (6)
  - Product solubility abnormal [Unknown]
  - Product odour abnormal [Unknown]
  - Dyspnoea [Not Recovered/Not Resolved]
  - Medication residue present [Unknown]
  - Rash generalised [Not Recovered/Not Resolved]
  - Urticaria [Not Recovered/Not Resolved]
